FAERS Safety Report 8549969-4 (Version None)
Quarter: 2012Q3

REPORT INFORMATION
  Report Type: 
  Country: None (occurrence: None)
  Receive Date: 20120730
  Receipt Date: 20120716
  Transmission Date: 20120928
  Serious: Yes (Other)
  Sender: FDA-Public Use
  Company Number: CN-ASTRAZENECA-2012SE53321

PATIENT
  Sex: Male
  Weight: 76 kg

DRUGS (2)
  1. FLUVASTATIN SODIUM [Concomitant]
  2. FELODIPINE [Suspect]
     Route: 048

REACTIONS (3)
  - POLYURIA [None]
  - INSOMNIA [None]
  - CONVULSION [None]
